FAERS Safety Report 4892360-2 (Version None)
Quarter: 2006Q1

REPORT INFORMATION
  Report Type: 
  Country: None (occurrence: None)
  Receive Date: 20060126
  Receipt Date: 20060123
  Transmission Date: 20060701
  Serious: Yes (Hospitalization)
  Sender: FDA-Public Use
  Company Number: ES-GLAXOSMITHKLINE-B0407745A

PATIENT
  Age: 51 Year
  Sex: Male

DRUGS (2)
  1. AUGMENTIN [Suspect]
     Indication: BACTERIAL INFECTION
     Route: 048
     Dates: start: 20051126, end: 20051126
  2. SEREVENT [Suspect]
     Indication: ASTHMA
     Dosage: 150UG TWICE PER DAY

REACTIONS (1)
  - PANCREATITIS [None]
